FAERS Safety Report 23203528 (Version 1)
Quarter: 2023Q4

REPORT INFORMATION
  Report Type: Spontaneous
  Country: US (occurrence: None)
  Receive Date: 20231119
  Receipt Date: 20231119
  Transmission Date: 20240109
  Serious: Yes (Disabling, Other)
  Sender: FDA-Public Use
  Company Number: None

PATIENT
  Age: 78 Year
  Sex: Male
  Weight: 96.3 kg

DRUGS (1)
  1. OZEMPIC [Suspect]
     Active Substance: SEMAGLUTIDE
     Indication: Blood glucose increased
     Route: 058
     Dates: start: 20230802, end: 20231101

REACTIONS (7)
  - Hypotension [None]
  - Decreased appetite [None]
  - Asthenia [None]
  - Dizziness [None]
  - Constipation [None]
  - Weight decreased [None]
  - Blood creatinine increased [None]

NARRATIVE: CASE EVENT DATE: 20231018
